FAERS Safety Report 17265430 (Version 1)
Quarter: 2020Q1

REPORT INFORMATION
  Report Type: Report from Study
  Country: None (occurrence: IT)
  Receive Date: 20200114
  Receipt Date: 20200114
  Transmission Date: 20200409
  Serious: Yes (Death)
  Sender: FDA-Public Use
  Company Number: IT-ABBVIE-20K-083-3230301-00

PATIENT
  Age: 77 Year
  Sex: Male

DRUGS (1)
  1. DUODOPA [Suspect]
     Active Substance: CARBIDOPA\LEVODOPA
     Indication: PARKINSON^S DISEASE
     Dosage: MD: 4+3??CR: 5,1??ED: 2,5
     Route: 050
     Dates: start: 20170306, end: 20191227

REACTIONS (2)
  - Respiratory disorder [Fatal]
  - Device occlusion [Unknown]

NARRATIVE: CASE EVENT DATE: 20191227
